FAERS Safety Report 5507430-5 (Version None)
Quarter: 2007Q4

REPORT INFORMATION
  Report Type: 
  Country: None (occurrence: None)
  Receive Date: 20071106
  Receipt Date: 20071029
  Transmission Date: 20080405
  Serious: Yes (Hospitalization)
  Sender: FDA-Public Use
  Company Number: FR-BRISTOL-MYERS SQUIBB COMPANY-13969472

PATIENT
  Age: 69 Year
  Sex: Male

DRUGS (7)
  1. ENDOXAN [Suspect]
     Indication: MANTLE CELL LYMPHOMA
     Route: 042
     Dates: start: 20021001, end: 20030101
  2. ETOPOSIDE [Suspect]
     Indication: MANTLE CELL LYMPHOMA
     Route: 042
     Dates: start: 20030301, end: 20030301
  3. BICNU [Suspect]
     Indication: MANTLE CELL LYMPHOMA
     Route: 042
     Dates: start: 20030301, end: 20030301
  4. ARACYTINE [Suspect]
     Indication: MANTLE CELL LYMPHOMA
     Dosage: 1DF=37G/M2
     Route: 042
     Dates: start: 20021001, end: 20030101
  5. ALKERAN [Suspect]
     Indication: MANTLE CELL LYMPHOMA
     Route: 042
     Dates: start: 20030301, end: 20030301
  6. MABTHERA [Suspect]
     Indication: MANTLE CELL LYMPHOMA
     Route: 042
     Dates: start: 20040101, end: 20040101
  7. ADRIAMYCIN PFS [Suspect]
     Indication: MANTLE CELL LYMPHOMA
     Dosage: ALSO TAKEN FROM NOV2003 TO JUN2004
     Route: 042
     Dates: start: 20021001, end: 20040601

REACTIONS (1)
  - ACUTE MYELOID LEUKAEMIA [None]
